FAERS Safety Report 4607772-1 (Version None)
Quarter: 2005Q1

REPORT INFORMATION
  Report Type: 
  Country: None (occurrence: None)
  Receive Date: 20050314
  Receipt Date: 20050303
  Transmission Date: 20050727
  Serious: Yes (Life-Threatening, Hospitalization)
  Sender: FDA-Public Use
  Company Number: FR-GLAXOSMITHKLINE-B0373807A

PATIENT
  Age: 78 Year
  Sex: Female
  Weight: 70 kg

DRUGS (6)
  1. HEMIGOXINE NATIVELLE [Suspect]
     Dosage: 1UNIT PER DAY
     Route: 048
     Dates: end: 20050127
  2. PRETERAX [Suspect]
     Dosage: 1UNIT PER DAY
     Route: 048
     Dates: end: 20050127
  3. NAPROXEN [Suspect]
     Dosage: 75MG TWICE PER DAY
     Route: 048
  4. ZYLORIC [Suspect]
     Dosage: 200MG PER DAY
     Route: 048
     Dates: end: 20050127
  5. FLECAINE [Suspect]
     Dosage: 100MG PER DAY
     Route: 048
     Dates: end: 20050127
  6. NOOTROPYL [Suspect]
     Dosage: 2400MG PER DAY
     Route: 048
     Dates: end: 20050127

REACTIONS (9)
  - BLOOD CREATININE INCREASED [None]
  - CARDIAC ARREST [None]
  - CREATININE RENAL CLEARANCE DECREASED [None]
  - ELECTROCARDIOGRAM QT PROLONGED [None]
  - LOSS OF CONSCIOUSNESS [None]
  - SINUS BRADYCARDIA [None]
  - TORSADE DE POINTES [None]
  - VENTRICULAR EXTRASYSTOLES [None]
  - VENTRICULAR HYPERTROPHY [None]
